FAERS Safety Report 9474972 (Version 1)
Quarter: 2013Q3

REPORT INFORMATION
  Report Type: Report from Study
  Country: GB (occurrence: GB)
  Receive Date: 20130824
  Receipt Date: 20130824
  Transmission Date: 20140515
  Serious: Yes (Other)
  Sender: FDA-Public Use
  Company Number: GB-ROCHE-1264978

PATIENT
  Sex: Female
  Weight: 80 kg

DRUGS (3)
  1. TOCILIZUMAB [Suspect]
     Indication: RHEUMATOID ARTHRITIS
     Dosage: LAST DOSE:06/AUG/2012
     Route: 065
     Dates: start: 20120329
  2. RITUXIMAB [Suspect]
     Indication: RHEUMATOID ARTHRITIS
     Dosage: LAST DOSE://2008
     Route: 065
     Dates: start: 20080415
  3. METHOTREXATE [Concomitant]

REACTIONS (1)
  - Invasive ductal breast carcinoma [Recovered/Resolved]
